FAERS Safety Report 19027739 (Version 1)
Quarter: 2021Q1

REPORT INFORMATION
  Report Type: Spontaneous
  Country: US (occurrence: US)
  Receive Date: 20210318
  Receipt Date: 20210318
  Transmission Date: 20210420
  Serious: Yes (Congenital Anomaly)
  Sender: FDA-Public Use
  Company Number: US-PURDUE-USA-2020-0166083

PATIENT
  Sex: Female

DRUGS (2)
  1. OXYCONTIN [Suspect]
     Active Substance: OXYCODONE HYDROCHLORIDE
     Indication: PRODUCT USED FOR UNKNOWN INDICATION
     Dosage: UNK
     Route: 048
  2. OXYCODONE HCL TABLETS (RHODES 91?490) [Suspect]
     Active Substance: OXYCODONE HYDROCHLORIDE
     Indication: EHLERS-DANLOS SYNDROME
     Dosage: UNK
     Route: 048
     Dates: start: 201601, end: 20170729

REACTIONS (5)
  - Congenital anomaly [Unknown]
  - Developmental delay [Unknown]
  - Learning disability [Unknown]
  - Cardiac disorder [Unknown]
  - Amnesia [Unknown]

NARRATIVE: CASE EVENT DATE: 201601
